FAERS Safety Report 7589130-3 (Version None)
Quarter: 2011Q3

REPORT INFORMATION
  Report Type: 
  Country: None (occurrence: None)
  Receive Date: 20110705
  Receipt Date: 20080729
  Transmission Date: 20111222
  Serious: Yes (Death, Disabling, Other)
  Sender: FDA-Public Use
  Company Number: US-BAYER-200825361NA

PATIENT
  Age: 60 Year
  Sex: Male
  Weight: 70.748 kg

DRUGS (20)
  1. MAGNEVIST [Suspect]
     Dosage: 30 ML, ONCE
     Route: 042
     Dates: start: 20050127, end: 20050127
  2. EPOGEN [Concomitant]
  3. ZEMPLAR [Concomitant]
  4. TOPROL-XL [Concomitant]
  5. PHOSLO [Concomitant]
  6. COUMADIN [Concomitant]
  7. MAGNEVIST [Suspect]
     Dosage: 40 ML, ONCE
     Dates: start: 20070116, end: 20070116
  8. MAGNEVIST [Suspect]
     Dosage: 25 ML, ONCE
     Route: 042
     Dates: start: 20060526, end: 20060526
  9. FERLECIT [Concomitant]
  10. FOSRENOL [Concomitant]
  11. ADVAIR DISKUS 100/50 [Concomitant]
  12. PROHANCE [Suspect]
  13. OPTIMARK [Suspect]
  14. MULTIHANCE [Suspect]
  15. AMIODARONE HCL [Concomitant]
  16. MAGNEVIST [Suspect]
     Indication: ANGIOGRAM
     Dosage: 40 ML, ONCE
     Dates: start: 20060526, end: 20060526
  17. RENAGEL [Concomitant]
  18. CARDIZEM [Concomitant]
  19. OMNISCAN [Suspect]
     Dosage: UNK
  20. LEVOTHYROXINE SODIUM [Concomitant]

REACTIONS (10)
  - FIBROSIS [None]
  - PAIN [None]
  - NEPHROGENIC SYSTEMIC FIBROSIS [None]
  - SKIN FIBROSIS [None]
  - INJURY [None]
  - JOINT STIFFNESS [None]
  - SCAR [None]
  - JOINT CONTRACTURE [None]
  - MUSCLE FIBROSIS [None]
  - GENERAL PHYSICAL HEALTH DETERIORATION [None]
